FAERS Safety Report 15851458 (Version 7)
Quarter: 2020Q3

REPORT INFORMATION
  Report Type: Spontaneous
  Country: PT (occurrence: PT)
  Receive Date: 20190122
  Receipt Date: 20200807
  Transmission Date: 20201102
  Serious: Yes (Life-Threatening, Hospitalization, Other)
  Sender: FDA-Public Use
  Company Number: PT-AUROBINDO-AUR-APL-2019-002298

PATIENT
  Age: 73 Year
  Sex: Female

DRUGS (2)
  1. INSULIN [Concomitant]
     Active Substance: INSULIN NOS
     Indication: TYPE 2 DIABETES MELLITUS
     Dosage: UNK
     Route: 065
  2. AMOXICILLIN+CLAVULANIC ACID 1000MG/200MG [Suspect]
     Active Substance: AMOXICILLIN\CLAVULANIC ACID
     Indication: PNEUMONIA
     Dosage: 1 DOSAGE FORM, TOTAL (FIRST ADMINISTRATION WAS BY THE INTRAVENOUS ROUTE IN THE EMERGENCY DEPARTMENT)
     Route: 042

REACTIONS (9)
  - Anaphylactic reaction [Recovering/Resolving]
  - Arteriosclerosis [Recovering/Resolving]
  - Shock [Recovering/Resolving]
  - Cardio-respiratory arrest [Recovering/Resolving]
  - Electrocardiogram ST segment elevation [Recovered/Resolved]
  - Arteriospasm coronary [Recovering/Resolving]
  - Kounis syndrome [Recovered/Resolved]
  - Rash [Recovering/Resolving]
  - Altered state of consciousness [Recovering/Resolving]
